FAERS Safety Report 6898463-5 (Version None)
Quarter: 2010Q3

REPORT INFORMATION
  Report Type: 
  Country: None (occurrence: None)
  Receive Date: 20100802
  Receipt Date: 20071026
  Transmission Date: 20110219
  Serious: No
  Sender: FDA-Public Use
  Company Number: US-PFIZER INC-2007077971

PATIENT
  Sex: Female
  Weight: 86.4 kg

DRUGS (3)
  1. LYRICA [Suspect]
     Indication: FIBROMYALGIA
     Dosage: FREQUENCY: 1 IN 1 D
     Dates: start: 20070915
  2. LIPITOR [Concomitant]
  3. ACETYLSALICYLIC ACID SRT [Concomitant]

REACTIONS (3)
  - ARTHRITIS [None]
  - INSOMNIA [None]
  - PAIN [None]
